FAERS Safety Report 20536014 (Version 1)
Quarter: 2022Q1

REPORT INFORMATION
  Report Type: Spontaneous
  Country: GB (occurrence: GB)
  Receive Date: 20220302
  Receipt Date: 20220302
  Transmission Date: 20220423
  Serious: Yes (Other)
  Sender: FDA-Public Use
  Company Number: GB-MHRA-MED-202202110747326230-BYKHG

PATIENT
  Age: 50 Year
  Sex: Male
  Weight: 133 kg

DRUGS (1)
  1. PREGABALIN [Suspect]
     Active Substance: PREGABALIN
     Indication: Anxiety
     Dosage: 75 MILLIGRAM, UNK
     Route: 065
     Dates: end: 20220210

REACTIONS (1)
  - Orgasm abnormal [Not Recovered/Not Resolved]
